FAERS Safety Report 10267470 (Version 2)
Quarter: 2014Q3

REPORT INFORMATION
  Report Type: Spontaneous
  Country: US (occurrence: US)
  Receive Date: 20140630
  Receipt Date: 20140811
  Transmission Date: 20150326
  Serious: Yes (Hospitalization, Other)
  Sender: FDA-Public Use
  Company Number: US-PFIZER INC-2014175336

PATIENT
  Age: 42 Year
  Sex: Female

DRUGS (4)
  1. MORPHINE [Concomitant]
     Active Substance: MORPHINE
     Indication: MIGRAINE
     Dosage: UNK
  2. HYDROMORPHONE [Concomitant]
     Active Substance: HYDROMORPHONE
     Indication: MIGRAINE
     Dosage: UNK
  3. SUMATRIPTAN SUCCINATE. [Suspect]
     Active Substance: SUMATRIPTAN SUCCINATE
     Indication: MIGRAINE
     Dosage: 6 MG, UNK
     Route: 058
  4. HYDROCODONE BITARTRATE AND ACETAMINOPHEN [Concomitant]
     Active Substance: ACETAMINOPHEN\HYDROCODONE BITARTRATE
     Indication: MIGRAINE
     Dosage: UNK

REACTIONS (22)
  - Pulse absent [Recovered/Resolved]
  - Supraventricular tachycardia [Recovered/Resolved]
  - Bradycardia [Recovered/Resolved]
  - Cardiac arrest [Recovered/Resolved]
  - Femoral pulse abnormal [Recovered/Resolved]
  - Lethargy [Recovered/Resolved]
  - Atrioventricular block complete [Recovered/Resolved]
  - Dysarthria [Recovered/Resolved]
  - Grip strength decreased [Recovered/Resolved]
  - Muscle rigidity [Recovered/Resolved]
  - Torsade de pointes [Recovered/Resolved]
  - Atrioventricular block second degree [Recovered/Resolved]
  - Left atrial dilatation [Recovered/Resolved]
  - Left ventricular hypertrophy [Recovered/Resolved]
  - Atrial fibrillation [Recovered/Resolved]
  - Gaze palsy [Recovered/Resolved]
  - Ventricular fibrillation [Recovered/Resolved]
  - Torticollis [Recovered/Resolved]
  - Diastolic dysfunction [Recovered/Resolved]
  - Muscle contracture [Recovered/Resolved]
  - Drooling [Recovered/Resolved]
  - Medication error [Recovered/Resolved]
